FAERS Safety Report 4445732-4 (Version None)
Quarter: 2004Q3

REPORT INFORMATION
  Report Type: 
  Country: None (occurrence: None)
  Receive Date: 20040910
  Receipt Date: 20040827
  Transmission Date: 20050211
  Serious: Yes (Death)
  Sender: FDA-Public Use
  Company Number: 200416484US

PATIENT
  Sex: Female

DRUGS (3)
  1. TAXOTERE [Suspect]
     Indication: NON-SMALL CELL LUNG CANCER
     Dosage: DOSE: 2 DOSES
     Route: 041
  2. TAXOL [Concomitant]
     Indication: NON-SMALL CELL LUNG CANCER
     Dosage: DOSE: UNK
  3. CARBOPLATIN [Concomitant]
     Indication: NON-SMALL CELL LUNG CANCER
     Dosage: DOSE: UNK

REACTIONS (2)
  - DISEASE PROGRESSION [None]
  - PNEUMONITIS [None]
